FAERS Safety Report 8735802 (Version 2)
Quarter: 2012Q4

REPORT INFORMATION
  Report Type: 
  Country: JP (occurrence: JP)
  Receive Date: 20120822
  Receipt Date: 20120926
  Transmission Date: 20130627
  Serious: No
  Sender: FDA-Public Use
  Company Number: JP-JNJFOC-20120808794

PATIENT
  Age: 4 None
  Sex: Female

DRUGS (1)
  1. TRAMCET [Suspect]
     Indication: PAIN
     Dosage: 3 tablets per day, 3 times daily
     Route: 048
     Dates: start: 201204, end: 201207

REACTIONS (1)
  - Alopecia [Recovering/Resolving]
